FAERS Safety Report 21642949 (Version 3)
Quarter: 2023Q1

REPORT INFORMATION
  Report Type: Spontaneous
  Country: US (occurrence: US)
  Receive Date: 20221125
  Receipt Date: 20230130
  Transmission Date: 20230418
  Serious: Yes (Other)
  Sender: FDA-Public Use
  Company Number: US-JNJFOC-20221150068

PATIENT
  Age: 52 Year
  Sex: Male
  Weight: 129.39 kg

DRUGS (8)
  1. RILPIVIRINE [Suspect]
     Active Substance: RILPIVIRINE
     Indication: HIV infection
     Dosage: 600 MG/400 MG
     Route: 030
     Dates: start: 20220725
  2. RILPIVIRINE [Suspect]
     Active Substance: RILPIVIRINE
     Dosage: 600 MG/400 MG
     Route: 030
     Dates: start: 20220823
  3. RILPIVIRINE [Suspect]
     Active Substance: RILPIVIRINE
     Dosage: 600 MG/400 MG
     Route: 030
     Dates: start: 20220920
  4. RILPIVIRINE [Suspect]
     Active Substance: RILPIVIRINE
     Dosage: 600 MG/400 MG
     Route: 030
     Dates: start: 20221018
  5. CABOTEGRAVIR [Suspect]
     Active Substance: CABOTEGRAVIR
     Indication: HIV infection
     Dosage: 600 MG/400 MG
     Route: 030
     Dates: start: 20220725
  6. CABOTEGRAVIR [Suspect]
     Active Substance: CABOTEGRAVIR
     Dosage: 600 MG/400 MG
     Route: 030
     Dates: start: 20220823
  7. CABOTEGRAVIR [Suspect]
     Active Substance: CABOTEGRAVIR
     Dosage: 600 MG/400 MG
     Route: 030
     Dates: start: 20220920
  8. CABOTEGRAVIR [Suspect]
     Active Substance: CABOTEGRAVIR
     Dosage: 600 MG/400 MG
     Route: 030
     Dates: start: 20221018

REACTIONS (3)
  - Therapeutic product effect decreased [Unknown]
  - Virologic failure [Unknown]
  - Viral load increased [Recovering/Resolving]

NARRATIVE: CASE EVENT DATE: 20220823
